FAERS Safety Report 7294817-6 (Version None)
Quarter: 2011Q1

REPORT INFORMATION
  Report Type: 
  Country: None (occurrence: None)
  Receive Date: 20110203
  Receipt Date: 20110118
  Transmission Date: 20110831
  Serious: Yes (Death)
  Sender: FDA-Public Use
  Company Number: B0694933A

PATIENT
  Age: 60 Year
  Sex: Female

DRUGS (8)
  1. ACETAMINOPHEN [Suspect]
     Dosage: ORAL
     Route: 048
  2. QUETIAPINE (QUETIAPINE FUMARATE) (FORMULATION UNKNOWN) [Suspect]
     Dosage: ORAL
     Route: 048
  3. CLOPIDOGREL [Suspect]
     Dosage: ORAL
     Route: 048
  4. LAMICTAL [Suspect]
     Dosage: ORAL
     Route: 048
  5. LISINOPRIL [Suspect]
     Dosage: ORAL
     Route: 048
  6. LORAZEPAM [Suspect]
     Dosage: ORAL
     Route: 048
  7. BUPROPION HYDROCHLORIDE UNSPECIFIED TABLET (BUPROPION HYDROCHLORIDE) ( [Suspect]
     Dosage: ORAL
     Route: 048
  8. TRAZODONE HCL [Suspect]
     Dosage: ORAL
     Route: 048

REACTIONS (1)
  - COMPLETED SUICIDE [None]
